FAERS Safety Report 5345251-7 (Version None)
Quarter: 2007Q2

REPORT INFORMATION
  Report Type: 
  Country: None (occurrence: None)
  Receive Date: 20070601
  Receipt Date: 20070521
  Transmission Date: 20071010
  Serious: Yes (Other)
  Sender: FDA-Public Use
  Company Number: 2007322250

PATIENT
  Sex: Female
  Weight: 60.3 kg

DRUGS (1)
  1. NICOTROL [Suspect]
     Indication: SMOKING CESSATION THERAPY
     Dosage: TRANSDERMAL
     Route: 062
     Dates: start: 20030101

REACTIONS (3)
  - BLISTER [None]
  - IRRITABILITY [None]
  - OSTEOPOROSIS [None]
